FAERS Safety Report 12728091 (Version 1)
Quarter: 2016Q3

REPORT INFORMATION
  Report Type: Spontaneous
  Country: US (occurrence: US)
  Receive Date: 20160906
  Receipt Date: 20160906
  Transmission Date: 20161109
  Serious: Yes (Other)
  Sender: FDA-Public Use
  Company Number: None

PATIENT
  Age: 48 Year
  Sex: Male
  Weight: 140 kg

DRUGS (1)
  1. CISATRACURIUM. [Suspect]
     Active Substance: CISATRACURIUM
     Indication: TRACHEOSTOMY
     Dosage: 10 MG TWICE IV
     Route: 042
     Dates: start: 20160826

REACTIONS (1)
  - Drug ineffective [None]

NARRATIVE: CASE EVENT DATE: 20160825
